FAERS Safety Report 18902779 (Version 1)
Quarter: 2021Q1

REPORT INFORMATION
  Report Type: Spontaneous
  Country: US (occurrence: US)
  Receive Date: 20210216
  Receipt Date: 20210216
  Transmission Date: 20210420
  Serious: Yes (Other)
  Sender: FDA-Public Use
  Company Number: None

PATIENT
  Age: 43 Year
  Sex: Female
  Weight: 61 kg

DRUGS (1)
  1. GAMUNEX?C [Suspect]
     Active Substance: HUMAN IMMUNOGLOBULIN G
     Dosage: ?          OTHER FREQUENCY:MONTHLY;?
     Route: 041
     Dates: start: 20210212, end: 20210212

REACTIONS (3)
  - Erythema [None]
  - Swelling [None]
  - Urticaria [None]

NARRATIVE: CASE EVENT DATE: 20210212
